FAERS Safety Report 19143107 (Version 1)
Quarter: 2021Q2

REPORT INFORMATION
  Report Type: Report from Study
  Country: ES (occurrence: ES)
  Receive Date: 20210416
  Receipt Date: 20210416
  Transmission Date: 20210717
  Serious: Yes (Hospitalization, Other)
  Sender: FDA-Public Use
  Company Number: ES-AUROBINDO-AUR-APL-2021-015075

PATIENT
  Age: 55 Year
  Sex: Male

DRUGS (2)
  1. MEROPENEM. [Suspect]
     Active Substance: MEROPENEM
     Indication: PYREXIA
     Dosage: 2 GRAM, 3 TIMES A DAY
     Route: 065
  2. COLISTIN [Suspect]
     Active Substance: COLISTIN
     Indication: PYREXIA
     Dosage: 3 MU, 3 TIMES A DAY
     Route: 042

REACTIONS (1)
  - Drug ineffective [Unknown]
